FAERS Safety Report 8044591-0 (Version None)
Quarter: 2012Q1

REPORT INFORMATION
  Report Type: 
  Country: None (occurrence: None)
  Receive Date: 20120113
  Receipt Date: 20120113
  Transmission Date: 20120608
  Serious: Yes (Other)
  Sender: FDA-Public Use
  Company Number: None

PATIENT
  Age: 35 Year
  Sex: Female
  Weight: 81.646 kg

DRUGS (1)
  1. MIRENA [Suspect]
     Indication: CONTRACEPTION
     Dosage: 20MCG
     Route: 015

REACTIONS (14)
  - ANXIETY [None]
  - MEMORY IMPAIRMENT [None]
  - INCREASED APPETITE [None]
  - FLUID RETENTION [None]
  - ABDOMINAL DISTENSION [None]
  - HEADACHE [None]
  - FEELING ABNORMAL [None]
  - ACNE [None]
  - FATIGUE [None]
  - WEIGHT INCREASED [None]
  - MOOD SWINGS [None]
  - DEPRESSION [None]
  - VAGINAL HAEMORRHAGE [None]
  - AGGRESSION [None]
